FAERS Safety Report 7729088-7 (Version None)
Quarter: 2011Q3

REPORT INFORMATION
  Report Type: 
  Country: None (occurrence: None)
  Receive Date: 20110906
  Receipt Date: 20110826
  Transmission Date: 20111222
  Serious: Yes (Hospitalization)
  Sender: FDA-Public Use
  Company Number: US-US-EMD SERONO, INC.-231748J09USA

PATIENT
  Sex: Female

DRUGS (4)
  1. PROVIGIL [Concomitant]
  2. AMITRIPTYLINE HCL [Concomitant]
  3. VALIUM [Concomitant]
  4. REBIF [Suspect]
     Indication: MULTIPLE SCLEROSIS
     Route: 058
     Dates: start: 20080201

REACTIONS (9)
  - NAUSEA [None]
  - MUSCLE TIGHTNESS [None]
  - COGNITIVE DISORDER [None]
  - SENSATION OF HEAVINESS [None]
  - VISION BLURRED [None]
  - DIABETES MELLITUS [None]
  - DIZZINESS [None]
  - FEELING ABNORMAL [None]
  - FATIGUE [None]
